FAERS Safety Report 24194777 (Version 2)
Quarter: 2024Q3

REPORT INFORMATION
  Report Type: Spontaneous
  Country: CA (occurrence: CA)
  Receive Date: 20240809
  Receipt Date: 20240925
  Transmission Date: 20241017
  Serious: Yes (Death, Hospitalization, Other)
  Sender: PFIZER
  Company Number: CA-PFIZER INC-PV202400096696

PATIENT
  Age: 41 Year
  Sex: Female

DRUGS (1)
  1. TUKYSA [Suspect]
     Active Substance: TUCATINIB
     Indication: HER2 positive breast cancer
     Dosage: 200 MG, 2X/DAY
     Route: 048
     Dates: start: 20240626

REACTIONS (3)
  - Neoplasm progression [Fatal]
  - Asthenia [Unknown]
  - Speech disorder [Unknown]

NARRATIVE: CASE EVENT DATE: 20240801
